FAERS Safety Report 12808738 (Version 1)
Quarter: 2016Q4

REPORT INFORMATION
  Report Type: Spontaneous
  Country: DE (occurrence: DE)
  Receive Date: 20161004
  Receipt Date: 20161004
  Transmission Date: 20170207
  Serious: Yes (Hospitalization, Other)
  Sender: FDA-Public Use
  Company Number: DE-GILEAD-2016-0235235

PATIENT
  Age: 58 Year
  Sex: Female

DRUGS (1)
  1. IDELALISIB [Suspect]
     Active Substance: IDELALISIB
     Indication: CHRONIC LYMPHOCYTIC LEUKAEMIA
     Dosage: UNK
     Route: 065
     Dates: start: 20160201, end: 20160526

REACTIONS (6)
  - Off label use [Recovered/Resolved]
  - Disease progression [Unknown]
  - Hypercalcaemia [Recovered/Resolved]
  - Renal failure [Recovered/Resolved]
  - Drug ineffective [Unknown]
  - Chronic lymphocytic leukaemia transformation [Unknown]

NARRATIVE: CASE EVENT DATE: 2016
